FAERS Safety Report 5354480-8 (Version None)
Quarter: 2007Q2

REPORT INFORMATION
  Report Type: 
  Country: None (occurrence: None)
  Receive Date: 20070612
  Receipt Date: 20070608
  Transmission Date: 20071010
  Serious: Yes (Life-Threatening)
  Sender: FDA-Public Use
  Company Number: JP-SANOFI-SYNTHELABO-A01200704386

PATIENT
  Sex: Male
  Weight: 76.6 kg

DRUGS (3)
  1. PLAVIX [Suspect]
     Indication: CEREBRAL INFARCTION
     Route: 048
     Dates: start: 20070319, end: 20070413
  2. LOXONIN [Concomitant]
     Indication: HEADACHE
     Route: 048
     Dates: start: 20070406, end: 20070416
  3. TAKEPRON [Suspect]
     Indication: GASTRIC MUCOSAL LESION
     Route: 048
     Dates: start: 20070319, end: 20070416

REACTIONS (3)
  - AGRANULOCYTOSIS [None]
  - DISSEMINATED INTRAVASCULAR COAGULATION [None]
  - PSEUDOMEMBRANOUS COLITIS [None]
